FAERS Safety Report 21973130 (Version 8)
Quarter: 2024Q2

REPORT INFORMATION
  Report Type: Spontaneous
  Country: IN (occurrence: IN)
  Receive Date: 20230209
  Receipt Date: 20240620
  Transmission Date: 20240716
  Serious: Yes (Other)
  Sender: FDA-Public Use
  Company Number: IN-PFIZER INC-2021190274

PATIENT
  Age: 61 Year
  Sex: Female

DRUGS (4)
  1. LORLATINIB [Suspect]
     Active Substance: LORLATINIB
     Indication: Lung carcinoma cell type unspecified stage III
     Dosage: 100 MG, 1X/DAY
     Route: 048
     Dates: start: 20201223
  2. LORLATINIB [Suspect]
     Active Substance: LORLATINIB
     Dosage: 100 MG, 1X/DAY
     Route: 048
     Dates: start: 20210201
  3. LORLATINIB [Suspect]
     Active Substance: LORLATINIB
     Dosage: 100 MG, 1X/DAY
     Route: 048
     Dates: start: 20210402, end: 20210810
  4. LORLATINIB [Suspect]
     Active Substance: LORLATINIB
     Dosage: 75 MG, 1X/DAY
     Route: 048
     Dates: start: 20210810

REACTIONS (16)
  - Hypothyroidism [Unknown]
  - Hyperlipidaemia [Unknown]
  - Weight increased [Unknown]
  - Hypercholesterolaemia [Unknown]
  - Oedema peripheral [Unknown]
  - Blood triglycerides increased [Unknown]
  - Hilar lymphadenopathy [Unknown]
  - Blood pressure decreased [Unknown]
  - Heart rate decreased [Unknown]
  - Low density lipoprotein increased [Unknown]
  - Feeding disorder [Unknown]
  - Vomiting [Unknown]
  - Malaise [Unknown]
  - Osteoarthritis [Unknown]
  - Generalised oedema [Unknown]
  - Product dose omission in error [Unknown]
